FAERS Safety Report 23511895 (Version 1)
Quarter: 2024Q1

REPORT INFORMATION
  Report Type: Spontaneous
  Country: US (occurrence: US)
  Receive Date: 20240212
  Receipt Date: 20240212
  Transmission Date: 20240410
  Serious: No
  Sender: FDA-Public Use
  Company Number: US-AMGEN-USASP2024026348

PATIENT
  Age: 59 Year
  Sex: Female

DRUGS (4)
  1. RITUXIMAB [Suspect]
     Active Substance: RITUXIMAB
     Indication: Antiphospholipid syndrome
     Dosage: 1 GRAM, QWK, (2 DOSES)
     Route: 042
  2. METHYLPREDNISOLONE [Concomitant]
     Active Substance: METHYLPREDNISOLONE
     Indication: Antiphospholipid syndrome
     Dosage: 1 GRAM
     Route: 042
  3. PREDNISONE [Concomitant]
     Active Substance: PREDNISONE
     Dosage: 100 MILLIGRAM
     Route: 048
  4. CEFTRIAXONE [Concomitant]
     Active Substance: CEFTRIAXONE\CEFTRIAXONE SODIUM
     Indication: Haemophilus infection
     Dosage: UNK
     Route: 065

REACTIONS (2)
  - Drug effective for unapproved indication [Unknown]
  - Off label use [Unknown]
